FAERS Safety Report 24334465 (Version 3)
Quarter: 2025Q4

REPORT INFORMATION
  Report Type: Spontaneous
  Country: JP (occurrence: JP)
  Receive Date: 20240918
  Receipt Date: 20251110
  Transmission Date: 20260117
  Serious: Yes (Hospitalization)
  Sender: SUNOVION
  Company Number: JP-SUMITOMO PHARMA SWITZERLAND GMBH-2024SPA002630

PATIENT
  Age: 8 Decade
  Sex: Male

DRUGS (1)
  1. VIBEGRON [Suspect]
     Active Substance: VIBEGRON
     Indication: Product used for unknown indication
     Dosage: UNK

REACTIONS (1)
  - Antineutrophil cytoplasmic antibody positive [Unknown]
